FAERS Safety Report 4607473-X (Version None)
Quarter: 2005Q1

REPORT INFORMATION
  Report Type: 
  Country: None (occurrence: None)
  Receive Date: 20050314
  Receipt Date: 20050301
  Transmission Date: 20050727
  Serious: Yes (Death, Hospitalization)
  Sender: FDA-Public Use
  Company Number: DE-JNJFOC-20050301806

PATIENT
  Age: 71 Year
  Sex: Male

DRUGS (6)
  1. ACETAMINOPHEN [Suspect]
  2. ACETAMINOPHEN [Suspect]
     Indication: DRUG USE FOR UNKNOWN INDICATION
     Dosage: ~5,000 MG IN ONE DOSE
  3. PHENYTOIN [Suspect]
     Indication: DRUG USE FOR UNKNOWN INDICATION
  4. DIGOXIN [Suspect]
     Indication: DRUG USE FOR UNKNOWN INDICATION
  5. CAFFEINE [Suspect]
     Indication: DRUG USE FOR UNKNOWN INDICATION
  6. CHLORPHENAMINE [Suspect]
     Indication: DRUG USE FOR UNKNOWN INDICATION

REACTIONS (2)
  - MULTI-ORGAN FAILURE [None]
  - OVERDOSE [None]
